FAERS Safety Report 11750499 (Version 1)
Quarter: 2015Q4

REPORT INFORMATION
  Report Type: Spontaneous
  Country: US (occurrence: US)
  Receive Date: 20151118
  Receipt Date: 20151118
  Transmission Date: 20160304
  Serious: Yes (Other)
  Sender: FDA-Public Use
  Company Number: US-JNJFOC-20150702998

PATIENT
  Age: 37 Year
  Sex: Male

DRUGS (5)
  1. RISPERDAL [Suspect]
     Active Substance: RISPERIDONE
     Indication: UNEVALUABLE EVENT
     Dosage: VARYING DOSES OF 0.5MG, 1MG AND 2MG.
     Route: 048
     Dates: start: 20010701, end: 20011203
  2. RISPERDAL [Suspect]
     Active Substance: RISPERIDONE
     Indication: UNEVALUABLE EVENT
     Route: 048
     Dates: start: 19981012
  3. RISPERDAL [Suspect]
     Active Substance: RISPERIDONE
     Indication: UNEVALUABLE EVENT
     Route: 048
     Dates: start: 19990419, end: 20001113
  4. RISPERDAL [Suspect]
     Active Substance: RISPERIDONE
     Indication: UNEVALUABLE EVENT
     Dosage: VAYING DOSES OF 2MG AND 3MG.
     Route: 048
     Dates: start: 20001214, end: 20010507
  5. RISPERDAL [Suspect]
     Active Substance: RISPERIDONE
     Indication: UNEVALUABLE EVENT
     Route: 048
     Dates: start: 19980610

REACTIONS (6)
  - Haematospermia [Unknown]
  - Suicidal ideation [Unknown]
  - Nightmare [Unknown]
  - Abnormal weight gain [Unknown]
  - Gynaecomastia [Unknown]
  - Hair growth abnormal [Unknown]

NARRATIVE: CASE EVENT DATE: 201412
